FAERS Safety Report 5402171-7 (Version None)
Quarter: 2007Q3

REPORT INFORMATION
  Report Type: 
  Country: None (occurrence: None)
  Receive Date: 20070730
  Receipt Date: 20070711
  Transmission Date: 20080115
  Serious: Yes (Hospitalization)
  Sender: FDA-Public Use
  Company Number: 10841

PATIENT
  Age: 46 Year
  Sex: Female

DRUGS (6)
  1. REPLIVA 21/7 [Suspect]
     Indication: ANAEMIA
     Dosage: 1 TABLET DAILY ORAL
     Route: 048
     Dates: start: 20070614, end: 20070621
  2. LASIX [Concomitant]
  3. NEXIUM [Concomitant]
  4. ASPIRIN [Concomitant]
  5. LISINOPRIL [Concomitant]
  6. LOPRESSOR [Concomitant]

REACTIONS (6)
  - DEHYDRATION [None]
  - DYSGEUSIA [None]
  - ERUCTATION [None]
  - NAUSEA [None]
  - ORAL INTAKE REDUCED [None]
  - VOMITING [None]
